FAERS Safety Report 6477497-9 (Version None)
Quarter: 2009Q4

REPORT INFORMATION
  Report Type: 
  Country: None (occurrence: None)
  Receive Date: 20091207
  Receipt Date: 20091105
  Transmission Date: 20100525
  Serious: Yes (Hospitalization, Other)
  Sender: FDA-Public Use
  Company Number: JP-SANOFI-AVENTIS-F01200900733

PATIENT
  Age: 73 Year
  Sex: Female
  Weight: 64 kg

DRUGS (18)
  1. CLOPIDOGREL BISULFATE [Suspect]
     Indication: ACUTE CORONARY SYNDROME
     Dosage: DOSE TEXT: STARTING DOSE
     Route: 048
     Dates: start: 20081218, end: 20081218
  2. CLOPIDOGREL BISULFATE [Suspect]
     Dosage: DOSE TEXT: MAINTENANCE DOSE
     Route: 048
     Dates: start: 20081219
  3. ASPIRIN [Concomitant]
     Indication: ANGINA UNSTABLE
     Route: 048
     Dates: start: 19990101
  4. HEPARIN [Concomitant]
     Indication: ANGINA UNSTABLE
     Route: 042
     Dates: start: 20081201, end: 20081217
  5. BLOPRESS [Concomitant]
     Route: 048
  6. TENORMIN [Concomitant]
     Indication: ANGINA UNSTABLE
     Route: 048
  7. FLUITRAN [Concomitant]
     Route: 048
  8. OMEPRAL [Concomitant]
     Route: 048
  9. CARDENALIN [Concomitant]
     Route: 048
  10. CALSLOT [Concomitant]
     Route: 048
  11. LIPITOR [Concomitant]
     Route: 048
  12. SIGMART [Concomitant]
     Indication: ANGINA UNSTABLE
     Route: 048
  13. LASIX [Concomitant]
     Route: 048
  14. ALDACTONE [Concomitant]
     Route: 048
  15. FRANDOL [Concomitant]
     Indication: ANGINA UNSTABLE
     Dosage: DOSE TEXT: 1 SHEET
     Route: 065
  16. KREMEZIN [Concomitant]
     Dosage: DOSE TEXT: TID
     Route: 048
  17. NOVORAPID [Concomitant]
     Dosage: DOSE TEXT: 33-18-24 V, TID
     Route: 058
  18. INSULIN DETEMIR [Concomitant]
     Dosage: DOSE TEXT: 6-20 V, BID
     Route: 058

REACTIONS (3)
  - BLOOD CREATININE INCREASED [None]
  - BLOOD UREA INCREASED [None]
  - NEPHROGENIC ANAEMIA [None]
